FAERS Safety Report 4681561-4 (Version None)
Quarter: 2005Q2

REPORT INFORMATION
  Report Type: 
  Country: None (occurrence: None)
  Receive Date: 20050603
  Receipt Date: 20050520
  Transmission Date: 20051028
  Serious: Yes (Hospitalization)
  Sender: FDA-Public Use
  Company Number: US-ABBOTT-05P-163-0301531-00

PATIENT
  Age: 50 Year
  Weight: 67.646 kg

DRUGS (2)
  1. KALETRA [Suspect]
     Indication: HIV INFECTION
     Dosage: 133MG/33MG
     Route: 048
     Dates: start: 20010101
  2. TRUVADA [Interacting]
     Indication: HEPATITIS C VIRUS
     Dosage: 200 STC/300 VERIAN
     Route: 048
     Dates: start: 20040101, end: 20050505

REACTIONS (2)
  - DRUG INTERACTION [None]
  - RENAL FAILURE ACUTE [None]
